FAERS Safety Report 5859316-4 (Version None)
Quarter: 2008Q3

REPORT INFORMATION
  Report Type: 
  Country: None (occurrence: None)
  Receive Date: 20080827
  Receipt Date: 20080819
  Transmission Date: 20090109
  Serious: Yes (Hospitalization)
  Sender: FDA-Public Use
  Company Number: US-ASTRAZENECA-2008UW17077

PATIENT
  Age: 56 Year
  Sex: Male
  Weight: 82.6 kg

DRUGS (2)
  1. CRESTOR [Suspect]
     Indication: BLOOD CHOLESTEROL
     Route: 048
  2. WARFARIN SODIUM [Interacting]

REACTIONS (2)
  - DRUG INTERACTION [None]
  - THROMBOSIS [None]
